FAERS Safety Report 9718920 (Version 2)
Quarter: 2014Q1

REPORT INFORMATION
  Report Type: Spontaneous
  Country: US (occurrence: US)
  Receive Date: 20131127
  Receipt Date: 20140117
  Transmission Date: 20141002
  Serious: Yes (Death, Other)
  Sender: FDA-Public Use
  Company Number: US-INCYTE CORPORATION-2013IN002817

PATIENT
  Age: 75 Year
  Sex: Female
  Weight: 53.06 kg

DRUGS (15)
  1. JAKAFI [Suspect]
     Indication: MYELOFIBROSIS
     Dosage: 10 MG, BID, ONCE TO TWICE A WEEK
     Route: 048
     Dates: start: 20130111, end: 20130204
  2. JAKAFI [Suspect]
     Dosage: 10 MG, QD, ONCE A WEEK
     Route: 048
     Dates: start: 20130204, end: 20130212
  3. AMINOCAPROIC ACID [Concomitant]
  4. AMLODIPINE [Concomitant]
  5. CLONAZEPAM [Concomitant]
  6. FUROSEMIDE [Concomitant]
  7. LEVOTHYROXINE [Concomitant]
  8. PANTOPRAZOLE [Concomitant]
  9. QUETIAPINE [Concomitant]
  10. TOVIAZ [Concomitant]
  11. VICODIN [Concomitant]
  12. VITAMIN D3 [Concomitant]
  13. ZOLOFT [Concomitant]
  14. SODIUM BICARBONATE [Concomitant]
     Dosage: 650 MG
  15. HYDROCODONE - ACETAMINOPHEN [Concomitant]
     Dosage: 5MG/325MG

REACTIONS (5)
  - Disease progression [Fatal]
  - Pancytopenia [Recovering/Resolving]
  - Haemoglobin decreased [Unknown]
  - Platelet count decreased [Unknown]
  - Contusion [Unknown]
